FAERS Safety Report 7798929-X (Version None)
Quarter: 2011Q4

REPORT INFORMATION
  Report Type: 
  Country: None (occurrence: None)
  Receive Date: 20111006
  Receipt Date: 20111001
  Transmission Date: 20120403
  Serious: Yes (Other)
  Sender: FDA-Public Use
  Company Number: US-PFIZER INC-2011234335

PATIENT
  Sex: Male
  Weight: 88.435 kg

DRUGS (5)
  1. ACETYLSALICYLIC ACID [Concomitant]
     Dosage: 81 MG
  2. COREG [Concomitant]
     Indication: CARDIAC DISORDER
     Dosage: UNK
  3. PLAVIX [Concomitant]
     Indication: ANXIETY
     Dosage: UNK
  4. LYRICA [Suspect]
     Indication: NEURALGIA
     Dosage: 75 MG, 2X/DAY
     Route: 048
     Dates: start: 20110930
  5. LISINOPRIL [Concomitant]
     Indication: CARDIAC DISORDER
     Dosage: UNK

REACTIONS (5)
  - CHEST DISCOMFORT [None]
  - HEADACHE [None]
  - HYPERTENSION [None]
  - INSOMNIA [None]
  - DRY MOUTH [None]
